FAERS Safety Report 12281846 (Version 1)
Quarter: 2016Q2

REPORT INFORMATION
  Report Type: Not Available
  Country: None (occurrence: US)
  Receive Date: 20160419
  Receipt Date: 20160419
  Transmission Date: 20160815
  Serious: Yes (Life-Threatening)
  Sender: FDA-Public Use
  Company Number: US-AKORN-27338

PATIENT
  Sex: Male

DRUGS (1)
  1. FENTANYL CITRATE 20ML CII [Suspect]
     Active Substance: FENTANYL CITRATE

REACTIONS (1)
  - Drug ineffective [None]
